FAERS Safety Report 9293451 (Version 1)
Quarter: 2013Q2

REPORT INFORMATION
  Report Type: Spontaneous
  Country: US (occurrence: US)
  Receive Date: 20130516
  Receipt Date: 20130516
  Transmission Date: 20140414
  Serious: Yes (Death)
  Sender: FDA-Public Use
  Company Number: US-FRI-1000045172

PATIENT
  Sex: Female

DRUGS (1)
  1. TEFLARO [Suspect]
     Indication: CELLULITIS
     Route: 042
     Dates: start: 201305, end: 20130511

REACTIONS (2)
  - Convulsion [Fatal]
  - Off label use [Recovered/Resolved]
